FAERS Safety Report 12038842 (Version 1)
Quarter: 2016Q1

REPORT INFORMATION
  Report Type: Spontaneous
  Country: US (occurrence: US)
  Receive Date: 20160208
  Receipt Date: 20160208
  Transmission Date: 20160526
  Serious: No
  Sender: FDA-Public Use
  Company Number: US-ABBVIE-15K-163-1526464-00

PATIENT
  Age: 45 Year
  Sex: Female

DRUGS (3)
  1. HUMIRA [Suspect]
     Active Substance: ADALIMUMAB
     Indication: CROHN^S DISEASE
     Route: 058
     Dates: start: 20151112, end: 20151112
  2. HUMIRA [Suspect]
     Active Substance: ADALIMUMAB
     Route: 058
     Dates: start: 20151126, end: 20151126
  3. HUMIRA [Suspect]
     Active Substance: ADALIMUMAB
     Route: 058
     Dates: start: 20151217

REACTIONS (5)
  - Ear infection [Recovered/Resolved]
  - Injection site pain [Not Recovered/Not Resolved]
  - Poor quality drug administered [Recovered/Resolved]
  - Oropharyngeal pain [Recovered/Resolved]
  - Eustachian tube stenosis [Not Recovered/Not Resolved]

NARRATIVE: CASE EVENT DATE: 20151112
